FAERS Safety Report 5030330-4 (Version None)
Quarter: 2006Q2

REPORT INFORMATION
  Report Type: 
  Country: None (occurrence: None)
  Receive Date: 20060614
  Receipt Date: 20060509
  Transmission Date: 20061013
  Serious: Yes (Hospitalization)
  Sender: FDA-Public Use
  Company Number: 2006063063

PATIENT
  Age: 52 Year
  Sex: Female
  Weight: 79.3795 kg

DRUGS (1)
  1. BEXTRA [Suspect]
     Indication: CARPAL TUNNEL SYNDROME
     Dosage: 10 MG (10 MG, 1 IN 1 D)
     Dates: start: 20030314, end: 20031201

REACTIONS (3)
  - CARDIAC FAILURE [None]
  - GALLBLADDER DISORDER [None]
  - MYOCARDIAL INFARCTION [None]
